FAERS Safety Report 6905268-5 (Version None)
Quarter: 2010Q3

REPORT INFORMATION
  Report Type: 
  Country: None (occurrence: None)
  Receive Date: 20100804
  Receipt Date: 20100727
  Transmission Date: 20110219
  Serious: Yes (Other)
  Sender: FDA-Public Use
  Company Number: US-JNJFOC-20100708829

PATIENT
  Sex: Female
  Weight: 58.97 kg

DRUGS (4)
  1. DURAGESIC-100 [Suspect]
     Indication: ARTHRITIS
     Dosage: NDC: 50458-034-05
     Route: 062
  2. DURAGESIC-100 [Suspect]
     Dosage: NDC: 50458-092-05
     Route: 062
  3. DURAGESIC-100 [Suspect]
     Route: 062
  4. PROTONIX [Concomitant]
     Indication: GASTRIC DISORDER
     Route: 048

REACTIONS (8)
  - BLINDNESS [None]
  - CONSTIPATION [None]
  - EAR DISORDER [None]
  - HYPOKINESIA [None]
  - MALAISE [None]
  - MOVEMENT DISORDER [None]
  - NAUSEA [None]
  - VOMITING [None]
